FAERS Safety Report 8488720-3 (Version None)
Quarter: 2012Q2

REPORT INFORMATION
  Report Type: 
  Country: None (occurrence: None)
  Receive Date: 20120626
  Receipt Date: 20120619
  Transmission Date: 20120825
  Serious: Yes (Hospitalization, Other)
  Sender: FDA-Public Use
  Company Number: VAL_00776_2012

PATIENT
  Age: 45 Year
  Sex: Male

DRUGS (1)
  1. CARBAMAZEPINE [Suspect]
     Indication: PRODUCT USED FOR UNKNOWN INDICATION
     Dosage: (DF)

REACTIONS (16)
  - SPLENOMEGALY [None]
  - HEPATIC ENZYME INCREASED [None]
  - PYREXIA [None]
  - PRURITUS GENERALISED [None]
  - JAUNDICE [None]
  - LYMPHADENOPATHY [None]
  - SWELLING FACE [None]
  - ERYTHEMA [None]
  - RASH MACULO-PAPULAR [None]
  - LEUKOCYTOSIS [None]
  - RASH [None]
  - DRUG RASH WITH EOSINOPHILIA AND SYSTEMIC SYMPTOMS [None]
  - COUGH [None]
  - EOSINOPHILIA [None]
  - VOMITING [None]
  - MEASLES [None]
